FAERS Safety Report 15385821 (Version 2)
Quarter: 2018Q3

REPORT INFORMATION
  Report Type: Spontaneous
  Country: SK (occurrence: SK)
  Receive Date: 20180914
  Receipt Date: 20180918
  Transmission Date: 20181010
  Serious: Yes (Hospitalization, Other)
  Sender: FDA-Public Use
  Company Number: SK-HORIZON-BUP-0018-2015

PATIENT
  Age: 25 Year
  Sex: Female

DRUGS (4)
  1. L?CITRULLIN [Concomitant]
     Indication: ORNITHINE TRANSCARBAMOYLASE DEFICIENCY
  2. NATRIUM BENZOATE [Concomitant]
     Indication: ORNITHINE TRANSCARBAMOYLASE DEFICIENCY
     Dosage: UP TO 16 G/DAY
     Dates: start: 1994
  3. AMMONAPS TABLET [Suspect]
     Active Substance: SODIUM PHENYLBUTYRATE
     Indication: ORNITHINE TRANSCARBAMOYLASE DEFICIENCY
     Dosage: 0.5 GM 4 IN 1 D,INCREASED TO 1 GM 4 IN 1 D,INCREASED TO 1.5 GM 4 IN 1 D,INCREASED TO 2 GM 4 IN 1 D
     Dates: start: 200709, end: 20150112
  4. L?ARGININ [Concomitant]
     Indication: ORNITHINE TRANSCARBAMOYLASE DEFICIENCY
     Dosage: UP TO 12 G/DAY
     Dates: start: 1996

REACTIONS (4)
  - Breast feeding [Recovered/Resolved]
  - Maternal exposure during pregnancy [Recovered/Resolved]
  - Caesarean section [Recovered/Resolved]
  - Premature delivery [Unknown]

NARRATIVE: CASE EVENT DATE: 20150501
